FAERS Safety Report 6108670-7 (Version None)
Quarter: 2009Q1

REPORT INFORMATION
  Report Type: 
  Country: None (occurrence: None)
  Receive Date: 20090305
  Receipt Date: 20090219
  Transmission Date: 20090719
  Serious: Yes (Other)
  Sender: FDA-Public Use
  Company Number: 2009S1002919

PATIENT
  Age: 25 Year
  Sex: Female

DRUGS (2)
  1. OMEPRAZOLE [Suspect]
     Indication: GASTRIC PH DECREASED
     Dosage: 20 MG; ORAL
     Route: 048
     Dates: start: 20090202, end: 20090202
  2. SALBUTAMOL (CON.) [Concomitant]

REACTIONS (2)
  - ANXIETY [None]
  - LIP SWELLING [None]
